FAERS Safety Report 7780573-1 (Version None)
Quarter: 2011Q3

REPORT INFORMATION
  Report Type: 
  Country: None (occurrence: None)
  Receive Date: 20110927
  Receipt Date: 20110920
  Transmission Date: 20111222
  Serious: Yes (Other)
  Sender: FDA-Public Use
  Company Number: ZA-AMGEN-ZAFSP2011048934

PATIENT
  Age: 42 Year
  Sex: Female

DRUGS (3)
  1. CYTOXAN [Concomitant]
     Dosage: UNK
  2. NEULASTIM [Suspect]
     Indication: BREAST CANCER
     Dosage: UNK
     Route: 065
  3. ADRIAMYCIN PFS [Concomitant]
     Dosage: UNK

REACTIONS (1)
  - BRONCHITIS [None]
